FAERS Safety Report 8267873-6 (Version None)
Quarter: 2012Q2

REPORT INFORMATION
  Report Type: 
  Country: None (occurrence: None)
  Receive Date: 20120404
  Receipt Date: 20120322
  Transmission Date: 20120825
  Serious: Yes (Hospitalization)
  Sender: FDA-Public Use
  Company Number: 2012MA004042

PATIENT
  Age: 76 Year
  Sex: Male

DRUGS (12)
  1. MOVIPREP [Concomitant]
  2. ENALAPRIL MALEATE [Concomitant]
  3. LYRICA [Concomitant]
  4. HYDROCHLOROTHIAZIDE [Concomitant]
  5. FRAXIPARINE [Concomitant]
  6. GEMCITABINE HYDROCHLORIDE [Suspect]
     Indication: NEOPLASM MALIGNANT
     Dosage: 2000 MG;;IV
     Route: 042
     Dates: start: 20110501, end: 20120224
  7. OXYCONTIN [Concomitant]
  8. OXINORM [Concomitant]
  9. FUROSEMIDE [Concomitant]
  10. ACETAMINOPHEN [Concomitant]
  11. OMEPRAZOLE [Concomitant]
  12. FOLIUMZUUR [Concomitant]

REACTIONS (1)
  - WOUND INFECTION STAPHYLOCOCCAL [None]
